FAERS Safety Report 9294240 (Version 1)
Quarter: 2013Q1

REPORT INFORMATION
  Report Type: Spontaneous
  Country: US (occurrence: None)
  Receive Date: 20121227
  Receipt Date: 20121227
  Transmission Date: 20140127
  Serious: Yes (Hospitalization)
  Sender: FDA-Public Use
  Company Number: PHEH2012US014832

PATIENT
  Sex: Male

DRUGS (2)
  1. MYFORTIC [Suspect]
     Indication: RENAL TRANSPLANT
     Dosage: TABLET, 360 MG (720 MG IN THE MORNING AND 1080 MG IN THE AFTERNOON), ORAL
  2. NEORAL (CICLOSPORIN) [Concomitant]

REACTIONS (1)
  - Pneumonia [None]
